FAERS Safety Report 5208961-8 (Version None)
Quarter: 2007Q1

REPORT INFORMATION
  Report Type: 
  Country: None (occurrence: None)
  Receive Date: 20070116
  Receipt Date: 20070109
  Transmission Date: 20070707
  Serious: Yes (Other)
  Sender: FDA-Public Use
  Company Number: DE-AVENTIS-200710066DE

PATIENT
  Age: 60 Year
  Sex: Male

DRUGS (5)
  1. TRENTAL [Suspect]
     Route: 048
  2. TRENTAL [Suspect]
     Route: 048
  3. ASPIRIN [Concomitant]
  4. ASPIRIN [Concomitant]
  5. INSULIN [Concomitant]
     Indication: DIABETES MELLITUS

REACTIONS (1)
  - CEREBROVASCULAR ACCIDENT [None]
